FAERS Safety Report 9112484 (Version 1)
Quarter: 2013Q1

REPORT INFORMATION
  Report Type: Spontaneous
  Country: DE (occurrence: DE)
  Receive Date: 20130211
  Receipt Date: 20130211
  Transmission Date: 20140127
  Serious: Yes (Hospitalization)
  Sender: FDA-Public Use
  Company Number: DE-ASTRAZENECA-2013SE06004

PATIENT
  Sex: Male
  Weight: 68 kg

DRUGS (3)
  1. BRILIQUE [Suspect]
     Indication: STENT PLACEMENT
     Route: 048
  2. XARELTO [Interacting]
     Indication: INTRACARDIAC THROMBUS
     Route: 048
  3. ASS 100 [Concomitant]
     Indication: CORONARY ARTERY DISEASE
     Route: 048

REACTIONS (2)
  - Drug interaction [Unknown]
  - Epistaxis [Unknown]
